FAERS Safety Report 8096310-X (Version None)
Quarter: 2012Q1

REPORT INFORMATION
  Report Type: 
  Country: None (occurrence: None)
  Receive Date: 20120129
  Receipt Date: 20111208
  Transmission Date: 20120608
  Serious: No
  Sender: FDA-Public Use
  Company Number: US-ABBOTT-11P-163-0882198-00

PATIENT
  Age: 60 Year
  Sex: Female

DRUGS (17)
  1. NEXIUM [Concomitant]
  2. LISINOPRIL [Concomitant]
     Indication: HYPERTENSION
  3. HUMIRA [Suspect]
     Indication: RHEUMATOID ARTHRITIS
  4. PLAQUENIL [Concomitant]
     Indication: RHEUMATOID ARTHRITIS
  5. PREMARIN [Concomitant]
     Indication: HORMONE REPLACEMENT THERAPY
  6. MAG [Concomitant]
     Indication: SUPPLEMENTATION THERAPY
  7. VILLE DOT PATCH [Concomitant]
     Indication: HORMONE REPLACEMENT THERAPY
  8. METHOTREXATE [Concomitant]
     Indication: RHEUMATOID ARTHRITIS
  9. CYMBALTA [Concomitant]
     Indication: MUSCULOSKELETAL PAIN
  10. LYRICA [Concomitant]
     Indication: PAIN
  11. FOLIC ACID [Concomitant]
     Indication: VITAMIN SUPPLEMENTATION
  12. NEXIUM [Concomitant]
     Indication: GASTROOESOPHAGEAL REFLUX DISEASE
     Dosage: AT NIGHT
  13. PROZAC [Concomitant]
     Indication: STRESS
  14. XANAX [Concomitant]
     Indication: STRESS
  15. CALCIUM WITH 400MG VIT D [Concomitant]
     Indication: SUPPLEMENTATION THERAPY
  16. CRANBERRY [Concomitant]
     Indication: INFECTION PROPHYLAXIS
  17. AMBIEN [Concomitant]
     Indication: INSOMNIA
     Dosage: AT NIGHT

REACTIONS (9)
  - SKIN HYPERTROPHY [None]
  - SCLERODERMA [None]
  - MUSCULOSKELETAL PAIN [None]
  - LOCAL SWELLING [None]
  - PAIN IN EXTREMITY [None]
  - PYREXIA [None]
  - LOCALISED INFECTION [None]
  - ERYTHEMA [None]
  - SKIN EXFOLIATION [None]
